FAERS Safety Report 5817627-2 (Version None)
Quarter: 2008Q3

REPORT INFORMATION
  Report Type: 
  Country: None (occurrence: None)
  Receive Date: 20080722
  Receipt Date: 20080710
  Transmission Date: 20090109
  Serious: Yes (Hospitalization)
  Sender: FDA-Public Use
  Company Number: DE-ROCHE-573977

PATIENT
  Sex: Female
  Weight: 58 kg

DRUGS (3)
  1. XELODA [Suspect]
     Dosage: DOSAGE: 2X2075 MG
     Route: 048
     Dates: start: 20080618
  2. XELODA [Suspect]
     Route: 048
  3. AVASTIN [Concomitant]
     Route: 042
     Dates: start: 20080618, end: 20080627

REACTIONS (2)
  - HAEMOLYTIC ANAEMIA [None]
  - PALMAR-PLANTAR ERYTHRODYSAESTHESIA SYNDROME [None]
